FAERS Safety Report 22197325 (Version 1)
Quarter: 2023Q2

REPORT INFORMATION
  Report Type: Spontaneous
  Country: SI (occurrence: SI)
  Receive Date: 20230411
  Receipt Date: 20230411
  Transmission Date: 20230722
  Serious: Yes (Hospitalization)
  Sender: FDA-Public Use
  Company Number: SI-BoehringerIngelheim-2023-BI-229457

PATIENT
  Age: 78 Year
  Sex: Female

DRUGS (10)
  1. GLIQUIDONE [Suspect]
     Active Substance: GLIQUIDONE
     Indication: Product used for unknown indication
     Dates: start: 202105, end: 202108
  2. GLIQUIDONE [Suspect]
     Active Substance: GLIQUIDONE
     Dates: start: 202108
  3. EMPAGLIFLOZIN [Suspect]
     Active Substance: EMPAGLIFLOZIN
     Indication: Product used for unknown indication
     Dates: start: 202201
  4. PERINDOPRIL [Concomitant]
     Active Substance: PERINDOPRIL
     Indication: Product used for unknown indication
  5. ROSUVASTATIN [Concomitant]
     Active Substance: ROSUVASTATIN
     Indication: Product used for unknown indication
  6. METFORMIN [Concomitant]
     Active Substance: METFORMIN HYDROCHLORIDE
     Indication: Product used for unknown indication
     Dates: start: 202105
  7. METFORMIN [Concomitant]
     Active Substance: METFORMIN HYDROCHLORIDE
     Dates: end: 202105
  8. RIVAROXABAN [Concomitant]
     Active Substance: RIVAROXABAN
     Indication: Anticoagulant therapy
     Dates: start: 202109
  9. BISOPROLOL [Concomitant]
     Active Substance: BISOPROLOL
     Indication: Product used for unknown indication
     Dates: start: 202109
  10. FUROSEMIDE [Concomitant]
     Active Substance: FUROSEMIDE
     Indication: Product used for unknown indication
     Dates: start: 202109

REACTIONS (7)
  - Chest pain [Unknown]
  - Heart rate irregular [Unknown]
  - Atrial fibrillation [Unknown]
  - Diastolic dysfunction [Unknown]
  - Dyspnoea [Unknown]
  - Blood glucose increased [Not Recovered/Not Resolved]
  - Blood glucose increased [Unknown]

NARRATIVE: CASE EVENT DATE: 20210801
